FAERS Safety Report 13882034 (Version 1)
Quarter: 2017Q3

REPORT INFORMATION
  Report Type: Report from Study
  Country: None (occurrence: RO)
  Receive Date: 20170818
  Receipt Date: 20170818
  Transmission Date: 20171127
  Serious: Yes (Death)
  Sender: FDA-Public Use
  Company Number: RO-ABBVIE-17K-135-2074990-00

PATIENT
  Age: 79 Year
  Sex: Female

DRUGS (3)
  1. ISICOM [Concomitant]
     Active Substance: CARBIDOPA\LEVODOPA
     Indication: PARKINSON^S DISEASE
     Route: 048
  2. DUODOPA [Suspect]
     Active Substance: CARBIDOPA\LEVODOPA
     Indication: PARKINSON^S DISEASE
     Dosage: MD-15ML?CR-4.4ML?ED-2.5ML
     Route: 050
     Dates: start: 20170313, end: 20170716
  3. RIVOTRIL [Concomitant]
     Active Substance: CLONAZEPAM
     Indication: PSYCHOMOTOR HYPERACTIVITY
     Route: 048

REACTIONS (1)
  - Death [Fatal]

NARRATIVE: CASE EVENT DATE: 20170716
